FAERS Safety Report 12605371 (Version 1)
Quarter: 2016Q3

REPORT INFORMATION
  Report Type: Spontaneous
  Country: US (occurrence: US)
  Receive Date: 20160729
  Receipt Date: 20160729
  Transmission Date: 20161109
  Serious: Yes (Other)
  Sender: FDA-Public Use
  Company Number: US-TEVA-656402USA

PATIENT
  Age: 67 Year
  Sex: Male
  Weight: 120.31 kg

DRUGS (1)
  1. FLUCONAZOLE. [Suspect]
     Active Substance: FLUCONAZOLE
     Indication: FUNGAL INFECTION
     Route: 065
     Dates: start: 2016, end: 20160426

REACTIONS (2)
  - Acute hepatic failure [Unknown]
  - Yellow skin [Unknown]
